FAERS Safety Report 18888903 (Version 2)
Quarter: 2021Q1

REPORT INFORMATION
  Report Type: Not Available
  Country: US (occurrence: US)
  Receive Date: 20210212
  Receipt Date: 20210228
  Transmission Date: 20210420
  Serious: No
  Sender: FDA-Public Use
  Company Number: US-NEUROCRINE BIOSCIENCES INC.-2021NBI00529

PATIENT
  Age: 75 Year
  Sex: Female

DRUGS (7)
  1. WARFARIN [Concomitant]
     Active Substance: WARFARIN
  2. OMEPRAZOLE. [Concomitant]
     Active Substance: OMEPRAZOLE
  3. SENNA SMOOTH [Concomitant]
  4. VITAMIN B12 [Concomitant]
     Active Substance: CYANOCOBALAMIN
  5. ONGENTYS [Suspect]
     Active Substance: OPICAPONE
     Indication: PARKINSON^S DISEASE
     Route: 048
     Dates: start: 20201023
  6. LEXAPRO [Concomitant]
     Active Substance: ESCITALOPRAM OXALATE
  7. CARBIDOPA. [Concomitant]
     Active Substance: CARBIDOPA

REACTIONS (1)
  - Tremor [Unknown]
